FAERS Safety Report 10152232 (Version 1)
Quarter: 2014Q2

REPORT INFORMATION
  Report Type: Spontaneous
  Country: CA (occurrence: None)
  Receive Date: 20140501
  Receipt Date: 20140501
  Transmission Date: 20141212
  Serious: Yes (Hospitalization)
  Sender: FDA-Public Use
  Company Number: 2014CA00409

PATIENT
  Age: 14 Month
  Sex: Male

DRUGS (1)
  1. DONEPEZIL HYDROCHLORIDE [Suspect]

REACTIONS (7)
  - Medication error [None]
  - Bradycardia [None]
  - Mental status changes [None]
  - Drooling [None]
  - Vomiting [None]
  - Diarrhoea [None]
  - Nodal rhythm [None]
